FAERS Safety Report 6064092-9 (Version None)
Quarter: 2009Q1

REPORT INFORMATION
  Report Type: 
  Country: None (occurrence: None)
  Receive Date: 20090204
  Receipt Date: 20090123
  Transmission Date: 20090719
  Serious: Yes (Hospitalization)
  Sender: FDA-Public Use
  Company Number: ES-BIOGENIDEC-2009BI002356

PATIENT
  Age: 30 Year
  Sex: Female
  Weight: 60 kg

DRUGS (4)
  1. TYSABRI [Suspect]
     Indication: MULTIPLE SCLEROSIS
     Route: 002
     Dates: start: 20080317, end: 20081222
  2. BACLOFEN [Concomitant]
     Indication: MUSCLE SPASTICITY
     Route: 048
     Dates: start: 20081222
  3. GABAPENTIN [Concomitant]
     Indication: MUSCLE SPASMS
     Route: 048
     Dates: start: 20080101
  4. PREGABALIN [Concomitant]
     Indication: MUSCLE SPASMS
     Route: 048
     Dates: start: 20080101

REACTIONS (3)
  - CYANOSIS [None]
  - ERYTHEMA [None]
  - OEDEMA PERIPHERAL [None]
